FAERS Safety Report 5024448-X (Version None)
Quarter: 2006Q2

REPORT INFORMATION
  Report Type: 
  Country: None (occurrence: None)
  Receive Date: 20060607
  Receipt Date: 20060526
  Transmission Date: 20061013
  Serious: Yes (Other)
  Sender: FDA-Public Use
  Company Number: 2006069026

PATIENT
  Age: 44 Year
  Sex: Female
  Weight: 59.7 kg

DRUGS (5)
  1. INSPRA [Suspect]
     Indication: HYPERTENSION
     Dosage: 25 MG, ORAL
     Route: 048
     Dates: start: 20060403, end: 20060426
  2. INSPRA [Suspect]
     Indication: PRIMARY HYPERALDOSTERONISM
     Dosage: 25 MG, ORAL
     Route: 048
     Dates: start: 20060403, end: 20060426
  3. AMLODIPINE [Concomitant]
  4. FUROSEMIDE [Concomitant]
  5. DOXAZOSIN [Concomitant]

REACTIONS (3)
  - DEPRESSED MOOD [None]
  - DEPRESSION [None]
  - TEARFULNESS [None]
